FAERS Safety Report 13883499 (Version 1)
Quarter: 2017Q3

REPORT INFORMATION
  Report Type: Spontaneous
  Country: GB (occurrence: GB)
  Receive Date: 20170818
  Receipt Date: 20170818
  Transmission Date: 20171127
  Serious: Yes (Hospitalization)
  Sender: FDA-Public Use
  Company Number: GB-TEVA-795953ACC

PATIENT
  Age: 79 Year
  Sex: Male
  Weight: 88.1 kg

DRUGS (6)
  1. ALLOPURINOL. [Concomitant]
     Active Substance: ALLOPURINOL
  2. THIAMINE. [Concomitant]
     Active Substance: THIAMINE
  3. LISINOPRIL. [Suspect]
     Active Substance: LISINOPRIL
     Indication: HYPERTENSION
     Dosage: 10 MILLIGRAM DAILY;
     Route: 048
     Dates: end: 20170727
  4. BUMETANIDE. [Concomitant]
     Active Substance: BUMETANIDE
  5. PRAVASTATIN. [Concomitant]
     Active Substance: PRAVASTATIN
  6. APIXABAN [Concomitant]
     Active Substance: APIXABAN

REACTIONS (5)
  - Dysphonia [Unknown]
  - Pruritus [Unknown]
  - Angioedema [Recovering/Resolving]
  - Urticaria [Unknown]
  - Swelling [Unknown]
